FAERS Safety Report 8100969-8 (Version None)
Quarter: 2012Q1

REPORT INFORMATION
  Report Type: 
  Country: None (occurrence: None)
  Receive Date: 20120129
  Receipt Date: 20111020
  Transmission Date: 20120608
  Serious: No
  Sender: FDA-Public Use
  Company Number: US-ABBOTT-11P-163-0867007-00

PATIENT
  Age: 34 Year
  Sex: Male

DRUGS (3)
  1. PERCOCET [Concomitant]
     Indication: PAIN
     Dosage: 5MG/325MG - 2 TABLETS DAILY AS NEEDED
  2. HUMIRA [Suspect]
     Indication: RHEUMATOID ARTHRITIS
     Dates: start: 20110801, end: 20111010
  3. METHOTREXATE [Concomitant]
     Indication: ARTHRITIS

REACTIONS (7)
  - MALAISE [None]
  - DYSPNOEA [None]
  - RASH PUSTULAR [None]
  - ANGINA PECTORIS [None]
  - NODULE [None]
  - SWELLING FACE [None]
  - CHEST PAIN [None]
